FAERS Safety Report 9247602 (Version 1)
Quarter: 2013Q2

REPORT INFORMATION
  Report Type: Report from Study
  Country: MX (occurrence: MX)
  Receive Date: 20130423
  Receipt Date: 20130423
  Transmission Date: 20140414
  Serious: Yes (Death)
  Sender: FDA-Public Use
  Company Number: PHHY2013MX039298

PATIENT
  Age: 89 Year
  Sex: Female

DRUGS (1)
  1. CO-DIOVAN [Suspect]
     Indication: HYPERTENSION
     Dosage: 1 DF (80MG VALS/12.5MG HCT), DAILY
     Route: 048
     Dates: start: 201212

REACTIONS (1)
  - Infarction [Fatal]
